FAERS Safety Report 7495041-4 (Version None)
Quarter: 2011Q2

REPORT INFORMATION
  Report Type: 
  Country: None (occurrence: None)
  Receive Date: 20110520
  Receipt Date: 20110510
  Transmission Date: 20111010
  Serious: Yes (Hospitalization, Other)
  Sender: FDA-Public Use
  Company Number: US-CELGENEUS-163-20785-11041715

PATIENT
  Sex: Male

DRUGS (12)
  1. ACETAMINOPHEN [Concomitant]
     Indication: PREMEDICATION
     Dosage: 650
     Route: 048
  2. SANTYL [Concomitant]
     Route: 061
  3. THIAMINE [Concomitant]
     Dosage: 100 MILLIGRAM
     Route: 065
  4. INFLIXIMAB [Concomitant]
     Dosage: 10 MILLIGRAM/KILOGRAM
     Route: 065
  5. SOLU-CORTEF [Concomitant]
     Route: 065
  6. MAG-OX [Concomitant]
     Dosage: 400 MILLIGRAM
     Route: 048
  7. LISINOPRIL [Concomitant]
     Route: 065
  8. BENADRYL [Concomitant]
     Indication: PREMEDICATION
     Dosage: 50 MILLIGRAM
     Route: 048
  9. OMEPRAZOLE [Concomitant]
     Dosage: 20 MILLIGRAM
     Route: 065
  10. POTASSIUM CHLORIDE [Concomitant]
     Dosage: 40 MILLIEQUIVALENTS
     Route: 048
  11. THALOMID [Suspect]
     Indication: CROHN'S DISEASE
     Dosage: 50 MILLIGRAM
     Route: 048
     Dates: start: 20101208, end: 20101217
  12. MULTI-VITAMINS [Concomitant]
     Route: 065

REACTIONS (5)
  - CROHN'S DISEASE [None]
  - CHOLANGITIS SCLEROSING [None]
  - EPSTEIN-BARR VIRUS INFECTION [None]
  - HISTOPLASMOSIS DISSEMINATED [None]
  - JEJUNAL PERFORATION [None]
